FAERS Safety Report 15101804 (Version 2)
Quarter: 2018Q3

REPORT INFORMATION
  Report Type: Spontaneous
  Country: GR (occurrence: GR)
  Receive Date: 20180703
  Receipt Date: 20180829
  Transmission Date: 20181010
  Serious: Yes (Hospitalization)
  Sender: FDA-Public Use
  Company Number: GR-TEVA-2018-GR-920587

PATIENT
  Sex: Female

DRUGS (1)
  1. METHOTREXATE. [Suspect]
     Active Substance: METHOTREXATE
     Indication: ECTOPIC PREGNANCY
     Route: 065

REACTIONS (5)
  - Product use in unapproved indication [Unknown]
  - Vaginal haemorrhage [Unknown]
  - Abdominal pain upper [Unknown]
  - Off label use [Unknown]
  - Pelvic fluid collection [Unknown]
